FAERS Safety Report 23047788 (Version 2)
Quarter: 2023Q4

REPORT INFORMATION
  Report Type: Report from Study
  Country: US (occurrence: US)
  Receive Date: 20231010
  Receipt Date: 20231206
  Transmission Date: 20240109
  Serious: Yes (Hospitalization, Other)
  Sender: FDA-Public Use
  Company Number: US-BoehringerIngelheim-2023-BI-254999

PATIENT
  Age: 87 Year
  Sex: Female

DRUGS (17)
  1. OFEV [Suspect]
     Active Substance: NINTEDANIB
     Indication: Idiopathic pulmonary fibrosis
     Route: 048
     Dates: start: 20230624, end: 20230926
  2. OFEV [Suspect]
     Active Substance: NINTEDANIB
     Route: 048
     Dates: start: 20230717
  3. XANAX [Concomitant]
     Active Substance: ALPRAZOLAM
     Indication: Product used for unknown indication
  4. ASCORBIC ACID [Concomitant]
     Active Substance: ASCORBIC ACID
     Indication: Product used for unknown indication
     Dosage: 500 MG
     Route: 048
  5. CYANOCOBALAMIN (VITAMIN B-12) [Concomitant]
     Indication: Product used for unknown indication
     Route: 048
  6. ELIQUIS [Concomitant]
     Active Substance: APIXABAN
     Indication: Product used for unknown indication
     Route: 048
  7. PEPCID [Concomitant]
     Active Substance: FAMOTIDINE
     Indication: Product used for unknown indication
     Route: 048
  8. FLONASE [Concomitant]
     Active Substance: FLUTICASONE PROPIONATE
     Indication: Product used for unknown indication
     Dosage: 50MCG/ACTUATION, 2 SPRAY EACH NOSTRIL
     Route: 045
  9. LASIX [Concomitant]
     Active Substance: FUROSEMIDE
     Indication: Product used for unknown indication
     Dosage: 20 MG
     Route: 048
  10. NEURONTIN [Concomitant]
     Active Substance: GABAPENTIN
     Indication: Product used for unknown indication
     Route: 048
  11. lidocaine (LIDODERM) [Concomitant]
     Indication: Product used for unknown indication
     Dosage: APPLY 2 PATCH TO SKIN FOR UP TO 12 HOURS ON AND OFF 12 HOURS
     Route: 061
  12. LOSARTAN/HYDROCHLOORTHIAZIDE (HYZAAR) [Concomitant]
     Indication: Product used for unknown indication
     Dosage: 100-12.5MG
  13. methenamine (HIPREX) [Concomitant]
     Indication: Product used for unknown indication
     Dosage: 1 GRAM
  14. methimazole (TAPAZOLE) [Concomitant]
     Indication: Product used for unknown indication
     Route: 048
  15. prednisolone (DELTASONE) [Concomitant]
     Indication: Product used for unknown indication
     Route: 048
  16. ropinirole (REQUIP) [Concomitant]
     Indication: Product used for unknown indication
     Dosage: 1 TO 3 HOURS BEFORE BEDTIME
     Route: 048
  17. CRESTOR [Concomitant]
     Active Substance: ROSUVASTATIN CALCIUM
     Indication: Product used for unknown indication
     Route: 048

REACTIONS (8)
  - Idiopathic pulmonary fibrosis [Not Recovered/Not Resolved]
  - Intestinal haemorrhage [Recovered/Resolved]
  - Decreased appetite [Not Recovered/Not Resolved]
  - Abdominal discomfort [Not Recovered/Not Resolved]
  - Decreased appetite [Not Recovered/Not Resolved]
  - Taste disorder [Not Recovered/Not Resolved]
  - Diarrhoea [Not Recovered/Not Resolved]
  - Rectal haemorrhage [Recovered/Resolved]

NARRATIVE: CASE EVENT DATE: 20230624
